FAERS Safety Report 6122732-X (Version None)
Quarter: 2009Q1

REPORT INFORMATION
  Report Type: 
  Country: None (occurrence: None)
  Receive Date: 20090318
  Receipt Date: 20090306
  Transmission Date: 20090719
  Serious: Yes (Hospitalization)
  Sender: FDA-Public Use
  Company Number: SE-AMGEN-UK337768

PATIENT
  Sex: Female
  Weight: 62 kg

DRUGS (2)
  1. NEULASTA [Suspect]
     Indication: DRUG USE FOR UNKNOWN INDICATION
  2. BEVACIZUMAB [Concomitant]
     Route: 042
     Dates: start: 20090211, end: 20090226

REACTIONS (1)
  - BACK PAIN [None]
